FAERS Safety Report 14787155 (Version 4)
Quarter: 2021Q3

REPORT INFORMATION
  Report Type: Other
  Country: GB (occurrence: GB)
  Receive Date: 20180421
  Receipt Date: 20210803
  Transmission Date: 20211014
  Serious: Yes (Death)
  Sender: FDA-Public Use
  Company Number: GB-ROCHE-2081609

PATIENT
  Age: 49 Year
  Sex: Female

DRUGS (34)
  1. DOCETAXEL. [Suspect]
     Active Substance: DOCETAXEL
     Route: 042
     Dates: start: 20151120
  2. PERTUZUMAB. [Suspect]
     Active Substance: PERTUZUMAB
     Indication: BREAST CANCER METASTATIC
     Dosage: LOADING DOSE
     Route: 042
     Dates: start: 20151023, end: 20151023
  3. MICONAZOLE. [Concomitant]
     Active Substance: MICONAZOLE
     Dates: start: 20170918, end: 20170920
  4. MORPHINE SULPHATE [Concomitant]
     Active Substance: MORPHINE SULFATE
     Dates: start: 20170918, end: 20170920
  5. ZOLEDRONIC ACID [Concomitant]
     Active Substance: ZOLEDRONIC ACID
     Dates: start: 20151022, end: 20170713
  6. LETROZOLE. [Suspect]
     Active Substance: LETROZOLE
     Indication: BREAST CANCER METASTATIC
     Route: 048
     Dates: start: 20160308
  7. TRASTUZUMAB. [Suspect]
     Active Substance: TRASTUZUMAB
     Indication: BREAST CANCER METASTATIC
     Dosage: LOADING DOSE
     Route: 042
     Dates: start: 20151023, end: 20151023
  8. CALCICHEW [Concomitant]
     Active Substance: CALCIUM CARBONATE
     Dates: start: 20151231, end: 20170919
  9. DEXAMETHASONE. [Concomitant]
     Active Substance: DEXAMETHASONE
     Dates: start: 20170728, end: 20170803
  10. NYSTATIN. [Concomitant]
     Active Substance: NYSTATIN
     Dates: start: 20170904, end: 20170919
  11. TRIMETHOPRIM. [Concomitant]
     Active Substance: TRIMETHOPRIM
     Dates: start: 20170915, end: 20170919
  12. CHLORPHENIRAMINE. [Concomitant]
     Active Substance: CHLORPHENIRAMINE
     Indication: PROPHYLAXIS
     Dates: start: 20151022, end: 20160222
  13. CLOTRIMAZOLE. [Concomitant]
     Active Substance: CLOTRIMAZOLE
     Dates: start: 20170918, end: 20170920
  14. GLYCOPYRRONIUM [Concomitant]
     Active Substance: GLYCOPYRRONIUM
     Dates: start: 20170919, end: 20170920
  15. ONDANSETRON [Concomitant]
     Active Substance: ONDANSETRON
     Dates: start: 20170809, end: 20170812
  16. FILGRASTIM [Concomitant]
     Active Substance: FILGRASTIM
  17. PERTUZUMAB. [Suspect]
     Active Substance: PERTUZUMAB
     Dosage: MAINTENANCE DOSE
     Route: 042
     Dates: start: 20151120
  18. DOMPERIDONE [Concomitant]
     Active Substance: DOMPERIDONE
     Dates: start: 20170810, end: 20170919
  19. LANSOPRAZOLE. [Concomitant]
     Active Substance: LANSOPRAZOLE
     Indication: PROPHYLAXIS
     Dates: start: 20170728, end: 20170905
  20. DOCETAXEL. [Suspect]
     Active Substance: DOCETAXEL
     Indication: BREAST CANCER METASTATIC
     Dosage: LOADING DOSE
     Route: 042
     Dates: start: 20151022, end: 20151022
  21. TRASTUZUMAB EMTANSINE [Suspect]
     Active Substance: ADO-TRASTUZUMAB EMTANSINE
     Indication: BREAST CANCER METASTATIC
     Route: 042
     Dates: start: 20170330, end: 20170608
  22. HALOPERIDOL. [Concomitant]
     Active Substance: HALOPERIDOL
     Route: 048
     Dates: start: 20170919, end: 20170920
  23. HYDROCORTISONE. [Concomitant]
     Active Substance: HYDROCORTISONE
     Indication: PROPHYLAXIS
     Dates: start: 20151022, end: 20160222
  24. TRASTUZUMAB. [Suspect]
     Active Substance: TRASTUZUMAB
     Dosage: MAINTENANCE DOSE
     Route: 042
     Dates: start: 20151120
  25. DEXAMETHASONE. [Concomitant]
     Active Substance: DEXAMETHASONE
     Dates: start: 20170803, end: 20170809
  26. HALOPERIDOL. [Concomitant]
     Active Substance: HALOPERIDOL
     Route: 048
     Dates: start: 20170810, end: 20170909
  27. MIDAZOLAM. [Concomitant]
     Active Substance: MIDAZOLAM
     Dates: start: 20170918, end: 20170920
  28. CHLORAMPHENICOL [Concomitant]
     Active Substance: CHLORAMPHENICOL
     Dates: start: 20170918, end: 20170920
  29. MIGRALEVE (UNITED KINGDOM) [Concomitant]
  30. ZOPICLONE [Concomitant]
     Active Substance: ZOPICLONE
     Dates: start: 20170825, end: 20170919
  31. TRASTUZUMAB EMTANSINE [Suspect]
     Active Substance: ADO-TRASTUZUMAB EMTANSINE
     Route: 042
     Dates: start: 20161201
  32. DEXAMETHASONE. [Concomitant]
     Active Substance: DEXAMETHASONE
     Indication: PROPHYLAXIS
     Dates: start: 20151210, end: 20160222
  33. DEXAMETHASONE. [Concomitant]
     Active Substance: DEXAMETHASONE
     Dates: start: 20170809, end: 20170919
  34. HALOPERIDOL. [Concomitant]
     Active Substance: HALOPERIDOL

REACTIONS (8)
  - Urinary tract infection [Recovered/Resolved]
  - Rectal haemorrhage [Fatal]
  - Oral candidiasis [Recovered/Resolved]
  - Insomnia [Recovered/Resolved]
  - Vulvovaginal candidiasis [Recovered/Resolved]
  - Neuropathy peripheral [Recovered/Resolved]
  - Nausea [Recovered/Resolved]
  - Conjunctivitis [Recovered/Resolved]

NARRATIVE: CASE EVENT DATE: 201705
